FAERS Safety Report 17387108 (Version 2)
Quarter: 2020Q1

REPORT INFORMATION
  Report Type: Other
  Country: US (occurrence: US)
  Receive Date: 20200206
  Receipt Date: 20200226
  Transmission Date: 20200409
  Serious: Yes (Hospitalization, Other)
  Sender: FDA-Public Use
  Company Number: US-AMAG PHARMACEUTICALS, INC.-AMAG202000399

PATIENT
  Age: 26 Year
  Sex: Female
  Weight: 113.5 kg

DRUGS (1)
  1. MAKENA [Suspect]
     Active Substance: HYDROXYPROGESTERONE CAPROATE
     Indication: PREMATURE DELIVERY
     Route: 058
     Dates: start: 20191119, end: 20200121

REACTIONS (5)
  - Shortened cervix [Recovered/Resolved]
  - Breech presentation [Recovered/Resolved]
  - Induced labour [Recovered/Resolved]
  - Pre-eclampsia [Recovered/Resolved]
  - Premature delivery [Recovered/Resolved]

NARRATIVE: CASE EVENT DATE: 20191217
